FAERS Safety Report 6673158-1 (Version None)
Quarter: 2010Q2

REPORT INFORMATION
  Report Type: 
  Country: None (occurrence: None)
  Receive Date: 20100408
  Receipt Date: 20100331
  Transmission Date: 20101027
  Serious: Yes (Hospitalization)
  Sender: FDA-Public Use
  Company Number: JP-ASTRAZENECA-2009SE20787

PATIENT
  Age: 68 Year
  Sex: Female
  Weight: 55 kg

DRUGS (3)
  1. DIPRIVAN [Suspect]
     Indication: SEDATION
     Dosage: 60 MG; 20-40 MG/KG/HR
     Route: 042
     Dates: start: 20090916, end: 20090916
  2. REMINARON [Concomitant]
     Dosage: DOSE UNKNOWN
     Route: 042
     Dates: start: 20090916
  3. OPYSTAN [Concomitant]
     Indication: SEDATION
     Route: 042
     Dates: start: 20090916, end: 20090916

REACTIONS (1)
  - HEPATIC FUNCTION ABNORMAL [None]
